FAERS Safety Report 5240704-4 (Version None)
Quarter: 2007Q1

REPORT INFORMATION
  Report Type: 
  Country: None (occurrence: None)
  Receive Date: 20061208
  Receipt Date: 20051003
  Transmission Date: 20070707
  Serious: Yes (Other)
  Sender: FDA-Public Use
  Company Number: 2005UW14792

PATIENT
  Age: 63 Year
  Sex: Male
  Weight: 91.172 kg

DRUGS (8)
  1. CRESTOR [Suspect]
     Indication: HYPERCHOLESTEROLAEMIA
     Dosage: 10 MG QD PO
     Route: 048
     Dates: start: 20050901
  2. ASPIRIN [Concomitant]
  3. ISORDIL [Concomitant]
  4. COZAAR [Concomitant]
  5. FISH OIL [Concomitant]
  6. FLOVENT [Concomitant]
  7. NEURONTIN [Concomitant]
  8. NEBULIZER MEDS FOR COPD [Concomitant]

REACTIONS (6)
  - ASTHENIA [None]
  - FLUSHING [None]
  - HYPERSENSITIVITY [None]
  - PAIN [None]
  - PRURITUS GENERALISED [None]
  - URTICARIA [None]
